FAERS Safety Report 8177707-6 (Version None)
Quarter: 2012Q1

REPORT INFORMATION
  Report Type: 
  Country: None (occurrence: None)
  Receive Date: 20120301
  Receipt Date: 20120227
  Transmission Date: 20120608
  Serious: Yes (Hospitalization, Other)
  Sender: FDA-Public Use
  Company Number: PHEH2012US004697

PATIENT
  Sex: Female

DRUGS (15)
  1. ROPINIROLE [Concomitant]
  2. CYMBALTA [Concomitant]
     Dosage: 60 MG, UNK
  3. VYTORIN [Concomitant]
     Dosage: 10/40 MG
  4. RECLAST [Suspect]
     Route: 042
  5. MULTI-VITAMINS [Concomitant]
  6. RECLAST [Suspect]
     Route: 042
  7. BUSPIRONE HCL [Concomitant]
     Dosage: 15 MG, UNK
  8. JANUVIA [Concomitant]
     Dosage: 100 MG, UNK
  9. RECLAST [Suspect]
     Route: 042
  10. FISH OIL [Concomitant]
     Dosage: 2000 MG, UNK
  11. RECLAST [Suspect]
     Route: 042
  12. ZOLPIDEM [Concomitant]
     Dosage: 5 MG, UNK
  13. LEVOTHYROXINE SODIUM [Concomitant]
     Dosage: 5 MG, UNK
  14. VITAMIN D [Concomitant]
     Dosage: 2000 IU, UNK
  15. ASPIRIN [Concomitant]
     Dosage: 81 MG, UNK

REACTIONS (6)
  - FALL [None]
  - FOREARM FRACTURE [None]
  - CONVULSION [None]
  - UPPER LIMB FRACTURE [None]
  - BONE DENSITY ABNORMAL [None]
  - POST PROCEDURAL HAEMORRHAGE [None]
